FAERS Safety Report 21673631 (Version 1)
Quarter: 2022Q4

REPORT INFORMATION
  Report Type: Report from Study
  Country: US (occurrence: US)
  Receive Date: 20221202
  Receipt Date: 20221202
  Transmission Date: 20230113
  Serious: No
  Sender: FDA-Public Use
  Company Number: US-ABBVIE-4187308

PATIENT
  Sex: Male

DRUGS (1)
  1. SKYRIZI [Suspect]
     Active Substance: RISANKIZUMAB-RZAA
     Indication: Psoriasis
     Dosage: 150 MG
     Route: 058

REACTIONS (5)
  - Skin disorder [Recovered/Resolved]
  - Hypertension [Unknown]
  - Arrhythmia [Unknown]
  - Attention deficit hyperactivity disorder [Unknown]
  - Hyperlipidaemia [Unknown]
